FAERS Safety Report 10018584 (Version 2)
Quarter: 2014Q2

REPORT INFORMATION
  Report Type: Spontaneous
  Country: US (occurrence: US)
  Receive Date: 20140318
  Receipt Date: 20140409
  Transmission Date: 20141212
  Serious: Yes (Other)
  Sender: FDA-Public Use
  Company Number: US-BAYER-2014-038196

PATIENT
  Age: 32 Year
  Sex: Female
  Weight: 66.21 kg

DRUGS (12)
  1. YASMIN [Suspect]
  2. YAZ [Suspect]
  3. MEDROL [Concomitant]
     Indication: CERVICAL RADICULOPATHY
     Dosage: TAKE FOR 7 DAYS AS DIRECTED
     Dates: start: 20080403
  4. METHYLPREDNISOLONE [Concomitant]
     Dosage: 4 MG, UNK
     Dates: start: 20080404
  5. DARVOCET-N [Concomitant]
     Indication: PAIN
     Dosage: 1 TABLET EVERY 4-6 HOURS AS NEEDED
     Dates: start: 20080530, end: 20080604
  6. BACTRIM DS [Concomitant]
     Dosage: 160-800MG,TABLET TWICE A DAY FOR 7 DAYS
     Route: 048
     Dates: start: 20080523, end: 20080529
  7. KEFLEX [Concomitant]
     Dosage: 500 MG, FOUR TIMES A DAY FOR 10 DAYS
     Route: 048
     Dates: start: 20080521, end: 20080529
  8. PHENERGAN [Concomitant]
     Indication: NAUSEA
     Dosage: 25 MG, HALF TABLET ORAL EVERY 6 HOURS PRN (AS NEEDED
     Route: 048
  9. FLEXERIL [Concomitant]
     Indication: MUSCLE SPASMS
     Dosage: 10  TABLET
     Dates: start: 20071230, end: 20080403
  10. ULTRACET [Concomitant]
  11. PERCOCET [Concomitant]
  12. ADVIL [Concomitant]

REACTIONS (2)
  - Thrombophlebitis superficial [None]
  - Deep vein thrombosis [None]
